FAERS Safety Report 9299320 (Version 1)
Quarter: 2013Q2

REPORT INFORMATION
  Report Type: Spontaneous
  Country: ES (occurrence: ES)
  Receive Date: 20130520
  Receipt Date: 20130520
  Transmission Date: 20140414
  Serious: Yes (Hospitalization)
  Sender: FDA-Public Use
  Company Number: ES-GILEAD-2013-0075423

PATIENT
  Age: 86 Year
  Sex: Male

DRUGS (4)
  1. RANOLAZINE [Suspect]
     Indication: ISCHAEMIC CARDIOMYOPATHY
     Dosage: 500 MG, BID
     Route: 048
     Dates: start: 201302, end: 20130305
  2. PROCORALAN [Suspect]
     Indication: ISCHAEMIC CARDIOMYOPATHY
     Dosage: 5 MG, BID
     Route: 048
     Dates: start: 201302, end: 20130305
  3. DERMATRANS                         /00003201/ [Concomitant]
     Indication: ISCHAEMIC CARDIOMYOPATHY
     Dosage: 10 MG, QD
     Route: 062
  4. TRUMSAL [Concomitant]
     Indication: CARDIAC FAILURE
     Dosage: 180 MG, QD
     Route: 048

REACTIONS (2)
  - Cardiac failure [Recovered/Resolved]
  - Constipation [Recovered/Resolved]
